FAERS Safety Report 8097834-1 (Version None)
Quarter: 2012Q1

REPORT INFORMATION
  Report Type: 
  Country: None (occurrence: None)
  Receive Date: 20120128
  Receipt Date: 20110804
  Transmission Date: 20120608
  Serious: No
  Sender: FDA-Public Use
  Company Number: US-ABBOTT-11P-163-0844439-00

PATIENT
  Sex: Female
  Weight: 52.21 kg

DRUGS (1)
  1. HUMIRA [Suspect]
     Indication: PSORIASIS
     Dosage: UNKNOWN
     Dates: start: 20100501, end: 20100601

REACTIONS (7)
  - SOMNOLENCE [None]
  - MITRAL VALVE PROLAPSE [None]
  - INJECTION SITE ERYTHEMA [None]
  - DYSPNOEA [None]
  - GAIT DISTURBANCE [None]
  - MUSCLE SPASMS [None]
  - FATIGUE [None]
